FAERS Safety Report 8478811-5 (Version None)
Quarter: 2012Q2

REPORT INFORMATION
  Report Type: 
  Country: None (occurrence: None)
  Receive Date: 20120629
  Receipt Date: 20120622
  Transmission Date: 20120825
  Serious: Yes (Hospitalization, Other)
  Sender: FDA-Public Use
  Company Number: FR-ROCHE-1081369

PATIENT
  Age: 75 Year
  Sex: Female

DRUGS (13)
  1. EPIRUBICIN HYDROCHLORIDE [Suspect]
     Indication: BREAST CANCER METASTATIC
     Route: 042
     Dates: start: 20041203, end: 20050502
  2. FASLODEX [Suspect]
     Indication: BREAST CANCER METASTATIC
     Route: 048
     Dates: start: 20070201, end: 20070501
  3. NAVOBAN [Suspect]
     Indication: BREAST CANCER METASTATIC
     Route: 048
     Dates: start: 20070701, end: 20071101
  4. AROMASIN [Suspect]
     Indication: BREAST CANCER METASTATIC
     Route: 048
     Dates: start: 20061101, end: 20070201
  5. DOXORUBICIN HCL [Suspect]
     Indication: BREAST CANCER METASTATIC
     Route: 042
     Dates: start: 20071127, end: 20091105
  6. FEMARA [Suspect]
     Indication: BREAST CANCER METASTATIC
     Route: 048
     Dates: start: 20050401, end: 20061101
  7. ARIMIDEX [Suspect]
     Indication: BREAST CANCER METASTATIC
     Route: 048
     Dates: start: 20080101, end: 20090201
  8. CYCLOPHOSPHAMIDE [Suspect]
     Indication: BREAST CANCER METASTATIC
     Route: 042
     Dates: start: 20041203, end: 20050202
  9. ESTRACYT [Suspect]
     Indication: BREAST CANCER METASTATIC
     Route: 048
     Dates: start: 20091203
  10. XELODA [Suspect]
     Indication: BREAST CANCER METASTATIC
     Route: 048
     Dates: start: 20071101, end: 20071101
  11. NAVELBINE [Suspect]
     Indication: BREAST CANCER METASTATIC
     Route: 042
     Dates: start: 20070701, end: 20071101
  12. TAXOTERE [Suspect]
     Indication: BREAST CANCER METASTATIC
     Route: 042
     Dates: start: 20050308, end: 20050419
  13. FLUOROURACIL [Suspect]
     Indication: BREAST CANCER METASTATIC
     Route: 042
     Dates: start: 20041203, end: 20050202

REACTIONS (1)
  - TONGUE NEOPLASM MALIGNANT STAGE UNSPECIFIED [None]
